FAERS Safety Report 11840589 (Version 1)
Quarter: 2015Q4

REPORT INFORMATION
  Report Type: Spontaneous
  Country: US (occurrence: None)
  Receive Date: 20151215
  Receipt Date: 20151215
  Transmission Date: 20160305
  Serious: Yes (Hospitalization)
  Sender: FDA-Public Use
  Company Number: None

PATIENT
  Age: 73 Year
  Sex: Female
  Weight: 68.49 kg

DRUGS (6)
  1. SYNTHROID [Concomitant]
     Active Substance: LEVOTHYROXINE SODIUM
  2. VITAMIN B12 [Concomitant]
     Active Substance: CYANOCOBALAMIN
  3. COENZYME Q10 [Concomitant]
     Active Substance: UBIDECARENONE
  4. VITAMIN [Concomitant]
     Active Substance: VITAMINS
  5. ZOLPIDEM [Suspect]
     Active Substance: ZOLPIDEM\ZOLPIDEM TARTRATE
     Indication: INSOMNIA
     Dosage: 1/2 - 1 TABLET AT THE BEDTIME
     Route: 048
  6. PROPAFANONE [Concomitant]

REACTIONS (2)
  - Somnambulism [None]
  - Road traffic accident [None]

NARRATIVE: CASE EVENT DATE: 20151119
